FAERS Safety Report 5930141-9 (Version None)
Quarter: 2008Q4

REPORT INFORMATION
  Report Type: 
  Country: None (occurrence: None)
  Receive Date: 20081021
  Receipt Date: 20081010
  Transmission Date: 20090506
  Serious: Yes (Hospitalization)
  Sender: FDA-Public Use
  Company Number: 230116K08USA

PATIENT
  Age: 24 Year
  Sex: Female
  Weight: 84 kg

DRUGS (4)
  1. REBIF [Suspect]
     Indication: MULTIPLE SCLEROSIS
     Dosage: 44 MCG, 3 IN 1 WEEKS, SUBCUTANEOUS
     Route: 058
     Dates: start: 20080128, end: 20080911
  2. HYDROCHLOROTHIAZIDE [Concomitant]
  3. HYDROCODONE (HYDROCODONE) [Concomitant]
  4. TYLENOL (COTYLENOL) [Concomitant]

REACTIONS (3)
  - MASS [None]
  - PAIN IN EXTREMITY [None]
  - THROMBOSIS [None]
